FAERS Safety Report 10196761 (Version 1)
Quarter: 2014Q2

REPORT INFORMATION
  Report Type: Spontaneous
  Country: US (occurrence: US)
  Receive Date: 20140527
  Receipt Date: 20140527
  Transmission Date: 20141212
  Serious: Yes (Other)
  Sender: FDA-Public Use
  Company Number: US-ACTAVIS-2014-10490

PATIENT
  Age: 47 Year
  Sex: Female

DRUGS (1)
  1. ERGOTAMINE [Suspect]
     Indication: MIGRAINE
     Dosage: EXTENSIVE USE
     Route: 065

REACTIONS (1)
  - Cardiac valve disease [Not Recovered/Not Resolved]
